FAERS Safety Report 12801807 (Version 2)
Quarter: 2016Q4

REPORT INFORMATION
  Report Type: Spontaneous
  Country: JP (occurrence: JP)
  Receive Date: 20161003
  Receipt Date: 20161021
  Transmission Date: 20170207
  Serious: Yes (Other)
  Sender: FDA-Public Use
  Company Number: JP-ROCHE-1837565

PATIENT
  Age: 66 Year
  Sex: Female

DRUGS (6)
  1. NIFEDIPINE. [Concomitant]
     Active Substance: NIFEDIPINE
     Indication: HYPERTENSION
     Dosage: UNK
     Route: 048
  2. METFORMIN [Concomitant]
     Active Substance: METFORMIN HYDROCHLORIDE
     Indication: DIABETES MELLITUS
     Dosage: UNK
     Route: 048
  3. LUCENTIS [Suspect]
     Active Substance: RANIBIZUMAB
     Dosage: UNK
     Route: 031
     Dates: start: 201501
  4. LUCENTIS [Suspect]
     Active Substance: RANIBIZUMAB
     Indication: DIABETIC RETINAL OEDEMA
     Dosage: IN LEFT EYE
     Route: 031
     Dates: start: 201412
  5. SITAGLIPTIN [Concomitant]
     Active Substance: SITAGLIPTIN
     Indication: DIABETES MELLITUS
     Dosage: UNK
     Route: 048
  6. LUCENTIS [Suspect]
     Active Substance: RANIBIZUMAB
     Dosage: UNK
     Route: 031
     Dates: start: 201502, end: 201502

REACTIONS (2)
  - Visual acuity reduced [Unknown]
  - Drug ineffective [Unknown]

NARRATIVE: CASE EVENT DATE: 201508
